FAERS Safety Report 24780085 (Version 1)
Quarter: 2024Q4

REPORT INFORMATION
  Report Type: Spontaneous
  Country: GB (occurrence: GB)
  Receive Date: 20241227
  Receipt Date: 20241227
  Transmission Date: 20250115
  Serious: Yes (Hospitalization, Disabling, Other)
  Sender: ELI LILLY AND COMPANY
  Company Number: GB-MHRA-TPP6736428C5469370YC1734600249694

PATIENT
  Age: 56 Year
  Sex: Female
  Weight: 84 kg

DRUGS (10)
  1. MOUNJARO [Suspect]
     Active Substance: TIRZEPATIDE
     Indication: Product used for unknown indication
     Dosage: 2.5 MG, WEEKLY (1/W) (ONE DOSE OF 2.5MG TO BE ADMINISTERED ONCE A WEEK)
     Route: 065
     Dates: start: 20240805
  2. COCODAMOL [Concomitant]
     Active Substance: ACETAMINOPHEN\CODEINE PHOSPHATE
     Indication: Product used for unknown indication
     Dosage: 4 DOSAGE FORM, DAILY
     Dates: start: 20241217
  3. LEVOTHYROXINE [Concomitant]
     Active Substance: LEVOTHYROXINE
     Indication: Product used for unknown indication
     Dosage: 1 DOSAGE FORM, DAILY (ONE TO BE TAKEN EACH MORNING TO TREAT UNDERACTI.)
     Route: 065
     Dates: start: 20190208
  4. METOCLOPRAMIDE [Concomitant]
     Active Substance: METOCLOPRAMIDE
     Indication: Product used for unknown indication
     Dosage: 1 DOSAGE FORM, TID (ONE TO BE TAKEN THREE TIMES DAILY AS NEEDED)
     Route: 065
     Dates: start: 20190208
  5. EMPAGLIFLOZIN [Concomitant]
     Active Substance: EMPAGLIFLOZIN
     Indication: Product used for unknown indication
     Dosage: 1 DOSAGE FORM, DAILY (ONE TABLET TO BE TAKEN ONCE  A DAY  FOR DIABETES)
     Route: 065
     Dates: start: 20210419
  6. METFORMIN [Concomitant]
     Active Substance: METFORMIN HYDROCHLORIDE
     Indication: Product used for unknown indication
     Dosage: 2 DOSAGE FORM, DAILY (TAKE TWO DAILY)
     Route: 065
     Dates: start: 20230126
  7. LISINOPRIL [Concomitant]
     Active Substance: LISINOPRIL
     Indication: Product used for unknown indication
     Dosage: 1 DOSAGE FORM, DAILY (ONE TABLET TO BE TAKEN ONCE A DAY  TO REDUCE BL...)
     Route: 065
     Dates: start: 20231103
  8. INSTANT [Concomitant]
     Active Substance: ALCOHOL
     Indication: Ill-defined disorder
     Dosage: UNK UNK, UNKNOWN
     Route: 065
     Dates: start: 20240423
  9. LANSOPRAZOLE [Concomitant]
     Active Substance: LANSOPRAZOLE
     Indication: Product used for unknown indication
     Dosage: 1 DOSAGE FORM, DAILY (ONE CAPSULE TO BE TAKEN ONCE A DAY)
     Route: 065
     Dates: start: 20240802
  10. GLICLAZIDE [Concomitant]
     Active Substance: GLICLAZIDE
     Indication: Product used for unknown indication
     Dosage: UNK (USE AS DIRECTED)

REACTIONS (6)
  - Cholecystitis acute [Recovering/Resolving]
  - Pancreatic enzymes increased [Recovering/Resolving]
  - Lipase increased [Unknown]
  - Cholelithiasis [Unknown]
  - Abdominal pain [Unknown]
  - Pancreatitis [Recovering/Resolving]
